FAERS Safety Report 26084417 (Version 1)
Quarter: 2025Q4

REPORT INFORMATION
  Report Type: Spontaneous
  Country: JP (occurrence: JP)
  Receive Date: 20251124
  Receipt Date: 20251124
  Transmission Date: 20260117
  Serious: Yes (Other)
  Sender: MERCK SHARP & DOHME LLC
  Company Number: JP-009507513-2350973

PATIENT
  Age: 45 Year
  Sex: Male

DRUGS (4)
  1. KEYTRUDA [Suspect]
     Active Substance: PEMBROLIZUMAB
     Indication: Clear cell renal cell carcinoma
     Dosage: STRENGTH: 100MG
     Dates: start: 202308, end: 2025
  2. LENVIMA [Suspect]
     Active Substance: LENVATINIB
     Indication: Clear cell renal cell carcinoma
     Dates: start: 202308, end: 202310
  3. LENVIMA [Suspect]
     Active Substance: LENVATINIB
     Indication: Clear cell renal cell carcinoma
     Dates: start: 202310, end: 202408
  4. LENVIMA [Suspect]
     Active Substance: LENVATINIB
     Indication: Clear cell renal cell carcinoma
     Dates: start: 202408, end: 2025

REACTIONS (6)
  - Biliary obstruction [Unknown]
  - Malignant neoplasm progression [Unknown]
  - Diarrhoea [Unknown]
  - Pancreatic duct obstruction [Unknown]
  - Proteinuria [Not Recovered/Not Resolved]
  - Therapy partial responder [Unknown]

NARRATIVE: CASE EVENT DATE: 20230101
